FAERS Safety Report 17524435 (Version 3)
Quarter: 2020Q2

REPORT INFORMATION
  Report Type: Spontaneous
  Country: TW (occurrence: TW)
  Receive Date: 20200310
  Receipt Date: 20200601
  Transmission Date: 20200713
  Serious: Yes (Death, Hospitalization)
  Sender: FDA-Public Use
  Company Number: TW-JNJFOC-20200301291

PATIENT
  Age: 86 Year
  Sex: Female

DRUGS (7)
  1. RIVAROXABAN [Suspect]
     Active Substance: RIVAROXABAN
     Indication: PRODUCT USED FOR UNKNOWN INDICATION
     Dosage: 10 MG, QD
     Route: 048
  2. LUNGTEC [Concomitant]
     Dosage: 1 DF,QN
     Route: 048
  3. ALGITAB [Concomitant]
     Dosage: 1 DF, TID
     Route: 048
  4. ACTEIN [Concomitant]
     Dosage: 1 DF, QD
     Route: 048
  5. ADEMPAS [Suspect]
     Active Substance: RIOCIGUAT
     Indication: PULMONARY HYPERTENSION
     Dosage: 2 MG, TID
     Route: 048
     Dates: start: 20161228, end: 2020
  6. FERROUS GLUCONATE [Concomitant]
     Active Substance: FERROUS GLUCONATE
     Dosage: 1 DF, QD
     Route: 048
  7. SENNOSIDE A+B [Concomitant]
     Active Substance: SENNOSIDES A AND B
     Dosage: 2 DF, HS
     Route: 048

REACTIONS (8)
  - Respiratory failure [Fatal]
  - Pneumonia [Recovering/Resolving]
  - Pneumonia [Fatal]
  - Cough [Recovering/Resolving]
  - Dyspnoea [Recovering/Resolving]
  - Productive cough [Recovering/Resolving]
  - Respiratory failure [Recovering/Resolving]
  - Dyspnoea [Fatal]

NARRATIVE: CASE EVENT DATE: 20200111
